FAERS Safety Report 9905933 (Version 1)
Quarter: 2014Q1

REPORT INFORMATION
  Report Type: Spontaneous
  Country: US (occurrence: None)
  Receive Date: 20140211
  Receipt Date: 20140211
  Transmission Date: 20141002
  Serious: Yes (Death)
  Sender: FDA-Public Use
  Company Number: AUR-APL-2014-01080

PATIENT
  Age: 47 Year
  Sex: Female

DRUGS (11)
  1. HYDROCODONE + PARACETAMOL [Suspect]
     Indication: PRODUCT USED FOR UNKNOWN INDICATION
  2. ALPRAZOLAM (ALPRAZOLAM) [Suspect]
     Indication: PRODUCT USED FOR UNKNOWN INDICATION
  3. HYDROCODONE + PARACETAMOL [Suspect]
     Indication: PRODUCT USED FOR UNKNOWN INDICATION
  4. ALPRAZOLAM (ALPRAZOLAM) [Suspect]
     Indication: PRODUCT USED FOR UNKNOWN INDICATION
  5. CITALOPRAM (CITALOPRAM) [Suspect]
     Indication: PRODUCT USED FOR UNKNOWN INDICATION
  6. VENLAFAXINE (VENLAFAXINE) [Suspect]
     Indication: PRODUCT USED FOR UNKNOWN INDICATION
  7. METHAMPHETAMINE (METAMFETAMINE HYDROCHLORIDE) [Suspect]
     Indication: PRODUCT USED FOR UNKNOWN INDICATION
     Route: 048
  8. BUPROPION (BUPROPION) [Suspect]
     Indication: PRODUCT USED FOR UNKNOWN INDICATION
  9. CARBAMAZEPINE (CARBAMAZEPINE) [Suspect]
     Indication: PRODUCT USED FOR UNKNOWN INDICATION
  10. DOXYLAMINE (DOXYLAMINE) [Suspect]
     Indication: PRODUCT USED FOR UNKNOWN INDICATION
  11. TRAMADOL (TRAMADOL) [Suspect]
     Indication: PRODUCT USED FOR UNKNOWN INDICATION

REACTIONS (2)
  - Exposure via ingestion [None]
  - Toxicity to various agents [None]
